FAERS Safety Report 8993369 (Version 2)
Quarter: 2013Q1

REPORT INFORMATION
  Report Type: Spontaneous
  Country: JP (occurrence: JP)
  Receive Date: 20130102
  Receipt Date: 20130211
  Transmission Date: 20140127
  Serious: Yes (Hospitalization)
  Sender: FDA-Public Use
  Company Number: JP-BRISTOL-MYERS SQUIBB COMPANY-17231150

PATIENT
  Age: 64 Year
  Sex: Female

DRUGS (10)
  1. METGLUCO [Suspect]
     Indication: DIABETES MELLITUS
     Route: 048
     Dates: start: 20110822, end: 20121210
  2. CONIEL [Concomitant]
     Indication: HYPERTENSION
     Route: 048
  3. OLMETEC [Concomitant]
     Indication: HYPERTENSION
     Route: 048
     Dates: start: 20071115
  4. ARTIST [Concomitant]
     Indication: CARDIAC FAILURE CONGESTIVE
     Route: 048
     Dates: start: 20101206
  5. MEVALOTIN [Concomitant]
     Indication: HYPERCHOLESTEROLAEMIA
     Route: 048
  6. LASIX [Concomitant]
     Indication: CARDIAC FAILURE CONGESTIVE
     Dates: start: 20101125
  7. MOHRUS [Concomitant]
     Indication: BACK PAIN
     Dosage: MOHRUS TAPE
     Dates: start: 20100820
  8. NOVORAPID [Concomitant]
     Indication: TYPE 2 DIABETES MELLITUS
     Dosage: INJ
     Route: 058
     Dates: start: 20110412
  9. LEVEMIR [Concomitant]
     Indication: TYPE 2 DIABETES MELLITUS
     Dosage: INJ
     Route: 058
     Dates: start: 20110412
  10. CELECOXIB [Concomitant]
     Indication: BACK PAIN
     Route: 048
     Dates: start: 20120409

REACTIONS (2)
  - Lactic acidosis [Recovered/Resolved]
  - Renal failure [Recovered/Resolved]
